FAERS Safety Report 23990838 (Version 1)
Quarter: 2024Q2

REPORT INFORMATION
  Report Type: Spontaneous
  Country: US (occurrence: US)
  Receive Date: 20240619
  Receipt Date: 20240619
  Transmission Date: 20240716
  Serious: No
  Sender: FDA-Public Use
  Company Number: US-E2BLSMVVAL-SPO/USA/24/0008581

PATIENT
  Age: 65 Year
  Sex: Male
  Weight: 128.25 kg

DRUGS (1)
  1. BUPRENORPHINE\NALOXONE [Suspect]
     Active Substance: BUPRENORPHINE\NALOXONE
     Indication: Arthralgia
     Dosage: MORNING 1 AND HALF FILM.
     Route: 060
     Dates: start: 20240522

REACTIONS (5)
  - Illness [Unknown]
  - Nasopharyngitis [Unknown]
  - Chills [Unknown]
  - Nausea [Unknown]
  - Abdominal discomfort [Unknown]

NARRATIVE: CASE EVENT DATE: 20240529
